FAERS Safety Report 10077954 (Version 1)
Quarter: 2014Q2

REPORT INFORMATION
  Report Type: Spontaneous
  Country: GB (occurrence: GB)
  Receive Date: 20140415
  Receipt Date: 20140415
  Transmission Date: 20141212
  Serious: Yes (Other)
  Sender: FDA-Public Use
  Company Number: GB-RANBAXY-2014RR-80204

PATIENT
  Age: 17 Year
  Sex: Male
  Weight: 47 kg

DRUGS (2)
  1. FLUOXETINE [Suspect]
     Indication: AFFECTIVE DISORDER
     Dosage: 12 MG
     Route: 048
     Dates: start: 20131211, end: 20140302
  2. RISPERIDONE [Concomitant]
     Indication: PRODUCT USED FOR UNKNOWN INDICATION
     Dosage: UNK
     Route: 065

REACTIONS (1)
  - Petit mal epilepsy [Recovering/Resolving]
